FAERS Safety Report 6123375-4 (Version None)
Quarter: 2009Q1

REPORT INFORMATION
  Report Type: 
  Country: None (occurrence: None)
  Receive Date: 20090318
  Receipt Date: 20090311
  Transmission Date: 20090719
  Serious: Yes (Hospitalization)
  Sender: FDA-Public Use
  Company Number: US-GENENTECH-279157

PATIENT
  Sex: Female

DRUGS (3)
  1. HERCEPTIN [Suspect]
     Indication: BREAST CANCER
     Dosage: UNK
  2. TAXOTERE [Concomitant]
     Indication: BREAST CANCER
     Dosage: UNK
  3. CARBOPLATIN [Concomitant]
     Indication: BREAST CANCER
     Dosage: UNK

REACTIONS (1)
  - THROMBOCYTOPENIA [None]
